FAERS Safety Report 8300175-8 (Version None)
Quarter: 2012Q2

REPORT INFORMATION
  Report Type: 
  Country: None (occurrence: None)
  Receive Date: 20120417
  Receipt Date: 20111109
  Transmission Date: 20120825
  Serious: Yes (Death)
  Sender: FDA-Public Use
  Company Number: IT-024297

PATIENT

DRUGS (2)
  1. (CHLORAMBUCIL) [Suspect]
     Indication: CHRONIC LYMPHOCYTIC LEUKAEMIA
     Dosage: 10 MG/M2 DAYS 1-7 AND EVERY 28 DAYS, FORM UNKNOWN, ORAL
     Route: 048
     Dates: start: 20090223
  2. OFATUMUMAB [Suspect]
     Indication: CHRONIC LYMPHOCYTIC LEUKAEMIA
     Dosage: 300MG DAY 1, 1000MG AT DAY 8 AND 1000MG EVERY 28 DAYS IN COMBINATION WITH CHLORAMBUCIL, INTRAVENOUS
     Route: 042

REACTIONS (2)
  - PNEUMONIA [None]
  - CARDIAC FAILURE CONGESTIVE [None]
